FAERS Safety Report 7901420-0 (Version None)
Quarter: 2011Q4

REPORT INFORMATION
  Report Type: 
  Country: None (occurrence: None)
  Receive Date: 20111108
  Receipt Date: 20111103
  Transmission Date: 20120403
  Serious: Yes (Death)
  Sender: FDA-Public Use
  Company Number: ES-CELGENEUS-144-21880-11110279

PATIENT

DRUGS (1)
  1. REVLIMID [Suspect]
     Indication: MULTIPLE MYELOMA
     Route: 048
     Dates: start: 20100101

REACTIONS (10)
  - GASTROINTESTINAL DISORDER [None]
  - MULTIPLE MYELOMA [None]
  - CONDITION AGGRAVATED [None]
  - RENAL IMPAIRMENT [None]
  - NERVOUS SYSTEM DISORDER [None]
  - INFECTION [None]
  - NO THERAPEUTIC RESPONSE [None]
  - HAEMATOTOXICITY [None]
  - SKIN DISORDER [None]
  - DEATH [None]
